FAERS Safety Report 10653149 (Version 1)
Quarter: 2014Q4

REPORT INFORMATION
  Report Type: Spontaneous
  Country: IE (occurrence: IE)
  Receive Date: 20141215
  Receipt Date: 20141215
  Transmission Date: 20150529
  Serious: Yes (Other)
  Sender: FDA-Public Use
  Company Number: IE-GLAXOSMITHKLINE-IE2014034486

PATIENT
  Sex: Female

DRUGS (15)
  1. GENERIC ASPIRIN [Concomitant]
     Dosage: 75 MG, UNK
  2. LANTUS [Concomitant]
     Active Substance: INSULIN GLARGINE
     Indication: DIABETES MELLITUS
  3. LIPITOR [Concomitant]
     Active Substance: ATORVASTATIN CALCIUM
     Dosage: 20 MG, UNK
  4. WARFARIN [Concomitant]
     Active Substance: WARFARIN
  5. COZAAR [Concomitant]
     Active Substance: LOSARTAN POTASSIUM
     Dosage: 100 MG, UNK
  6. BUTRANS [Concomitant]
     Active Substance: BUPRENORPHINE
     Dosage: 5 ?G, 24D
     Route: 062
  7. CARDICOR [Concomitant]
     Active Substance: BISOPROLOL
     Dosage: 2.5 MG, UNK
  8. NOVORAPID [Concomitant]
     Active Substance: INSULIN ASPART
     Indication: DIABETES MELLITUS
  9. QUININE [Concomitant]
     Active Substance: QUININE
     Dosage: 300 MG, UNK
  10. RELVAR ELLIPTA [Suspect]
     Active Substance: FLUTICASONE FUROATE\VILANTEROL TRIFENATATE
     Indication: LOWER RESPIRATORY TRACT INFECTION
  11. SERC [Concomitant]
     Active Substance: BETAHISTINE HYDROCHLORIDE
     Dosage: 16 MG, UNK
  12. BURINEX [Concomitant]
     Active Substance: BUMETANIDE
     Dosage: 1 MG, UNK
  13. CARDURA [Concomitant]
     Active Substance: DOXAZOSIN MESYLATE
     Dosage: 4 MG, UNK
  14. SINGULAIR [Concomitant]
     Active Substance: MONTELUKAST SODIUM
     Dosage: 10 MG, UNK
  15. PROTIUM [Concomitant]
     Dosage: 40 MG, UNK

REACTIONS (1)
  - Nightmare [Recovered/Resolved]
